FAERS Safety Report 5233019-1 (Version None)
Quarter: 2007Q1

REPORT INFORMATION
  Report Type: 
  Country: None (occurrence: None)
  Receive Date: 20061201
  Receipt Date: 20060919
  Transmission Date: 20070707
  Serious: No
  Sender: FDA-Public Use
  Company Number: 2006PV021577

PATIENT
  Age: 33 Year
  Sex: Female
  Weight: 62.1428 kg

DRUGS (5)
  1. BYETTA [Suspect]
     Indication: DIABETES MELLITUS NON-INSULIN-DEPENDENT
     Dosage: SEE IMAGE
     Route: 058
     Dates: start: 20060701, end: 20060801
  2. BYETTA [Suspect]
     Indication: DIABETES MELLITUS NON-INSULIN-DEPENDENT
     Dosage: SEE IMAGE
     Route: 058
     Dates: start: 20060801, end: 20060907
  3. LANTUS [Suspect]
     Indication: DIABETES MELLITUS
     Dosage: 18 UNITS;QPM;SC
     Route: 058
     Dates: start: 20060901
  4. HUMULIN 70/30 [Concomitant]
  5. ACTOS /USA/ [Concomitant]

REACTIONS (7)
  - CHEST PAIN [None]
  - DRUG INEFFECTIVE [None]
  - HEAD DISCOMFORT [None]
  - NAUSEA [None]
  - PALPITATIONS [None]
  - VEIN PAIN [None]
  - VOMITING [None]
